FAERS Safety Report 4731455-0 (Version None)
Quarter: 2005Q3

REPORT INFORMATION
  Report Type: 
  Country: None (occurrence: None)
  Receive Date: 20050802
  Receipt Date: 20050630
  Transmission Date: 20060218
  Serious: Yes (Hospitalization)
  Sender: FDA-Public Use
  Company Number: JP-SP-2005-01265

PATIENT
  Age: 56 Year
  Sex: Male

DRUGS (9)
  1. IMMUCYST [Suspect]
     Indication: BLADDER CANCER
     Route: 043
     Dates: start: 20050323, end: 20050526
  2. NIFEDIPINE [Concomitant]
     Dates: start: 20050307
  3. THIAMAZOLE [Concomitant]
     Dates: start: 20050307
  4. NORFLOXACIN [Concomitant]
     Dates: start: 20050330, end: 20050402
  5. CARBAZOCHROME SODIUM SULFONATE [Concomitant]
     Dates: start: 20050330, end: 20050401
  6. TRANEXAMIC ACID [Concomitant]
     Dates: start: 20050330, end: 20050401
  7. PROPIVERINE HYDROCHLORIDE [Concomitant]
     Dates: start: 20050330, end: 20050401
  8. LOXOPROFEN SODIUM [Concomitant]
     Dates: start: 20050407, end: 20050410
  9. KETOPROFEN [Concomitant]
     Dates: start: 20050414, end: 20050415

REACTIONS (2)
  - REITER'S SYNDROME [None]
  - WHITE BLOOD CELL COUNT INCREASED [None]
